FAERS Safety Report 16710080 (Version 4)
Quarter: 2020Q2

REPORT INFORMATION
  Report Type: Report from Study
  Country: BR (occurrence: BR)
  Receive Date: 20190816
  Receipt Date: 20200406
  Transmission Date: 20200713
  Serious: Yes (Life-Threatening, Hospitalization, Other)
  Sender: FDA-Public Use
  Company Number: BR-ROCHE-2358080

PATIENT
  Age: 51 Year
  Sex: Female

DRUGS (2)
  1. XOLAIR [Suspect]
     Active Substance: OMALIZUMAB
     Indication: URTICARIA
     Route: 065
     Dates: start: 20190212
  2. XOLAIR [Suspect]
     Active Substance: OMALIZUMAB
     Route: 065
     Dates: start: 20190409

REACTIONS (37)
  - Drug intolerance [Unknown]
  - Hypokinesia [Unknown]
  - Tongue erythema [Unknown]
  - Joint swelling [Not Recovered/Not Resolved]
  - Tongue haemorrhage [Recovered/Resolved]
  - Dizziness [Unknown]
  - Burning sensation [Recovering/Resolving]
  - Haemorrhage [Unknown]
  - Skin mass [Unknown]
  - Saliva discolouration [Not Recovered/Not Resolved]
  - Erythema [Not Recovered/Not Resolved]
  - Hypersensitivity [Unknown]
  - Nervousness [Unknown]
  - Pain in extremity [Unknown]
  - Chest pain [Recovered/Resolved with Sequelae]
  - Pruritus [Unknown]
  - Osteoarthritis [Unknown]
  - Vomiting [Unknown]
  - Tongue discolouration [Unknown]
  - Peripheral swelling [Recovered/Resolved with Sequelae]
  - Urticaria [Not Recovered/Not Resolved]
  - Tongue eruption [Unknown]
  - Skin discolouration [Not Recovered/Not Resolved]
  - Intra-abdominal haemorrhage [Unknown]
  - Ligament sprain [Unknown]
  - Gait disturbance [Not Recovered/Not Resolved]
  - Visual impairment [Not Recovered/Not Resolved]
  - Asthenia [Recovered/Resolved with Sequelae]
  - Apparent death [Unknown]
  - Malaise [Unknown]
  - Taste disorder [Not Recovered/Not Resolved]
  - Arthropathy [Unknown]
  - Purpura [Recovered/Resolved]
  - Platelet count decreased [Recovered/Resolved]
  - Head discomfort [Unknown]
  - Alopecia [Recovered/Resolved with Sequelae]
  - Feeling abnormal [Not Recovered/Not Resolved]

NARRATIVE: CASE EVENT DATE: 201904
